APPROVED DRUG PRODUCT: MISOPROSTOL
Active Ingredient: MISOPROSTOL
Strength: 0.2MG
Dosage Form/Route: TABLET;ORAL
Application: A216872 | Product #002 | TE Code: AB
Applicant: MICRO LABS LTD
Approved: Oct 17, 2022 | RLD: No | RS: No | Type: RX